FAERS Safety Report 6141063-5 (Version None)
Quarter: 2009Q2

REPORT INFORMATION
  Report Type: 
  Country: None (occurrence: None)
  Receive Date: 20090402
  Receipt Date: 20090323
  Transmission Date: 20091009
  Serious: Yes (Other)
  Sender: FDA-Public Use
  Company Number: CA-JNJFOC-20090306319

PATIENT
  Sex: Female
  Weight: 62.6 kg

DRUGS (2)
  1. REMICADE [Suspect]
     Route: 042
  2. REMICADE [Suspect]
     Indication: RHEUMATOID ARTHRITIS
     Dosage: 20 TOTAL INFUSIONS
     Route: 042

REACTIONS (9)
  - CHILLS [None]
  - COUGH [None]
  - DRY SKIN [None]
  - EAR PAIN [None]
  - HYPOACUSIS [None]
  - INFECTION [None]
  - PAIN [None]
  - PRURITUS [None]
  - SKIN DISCOLOURATION [None]
